FAERS Safety Report 7919611-1 (Version None)
Quarter: 2011Q4

REPORT INFORMATION
  Report Type: 
  Country: None (occurrence: None)
  Receive Date: 20111115
  Receipt Date: 20111108
  Transmission Date: 20120403
  Serious: Yes (Hospitalization, Other)
  Sender: FDA-Public Use
  Company Number: AUR-APL-2011-05757

PATIENT
  Age: 67 Year
  Sex: Female
  Weight: 83.5 kg

DRUGS (2)
  1. DIAZEPAM [Concomitant]
  2. MIRTAZAPINE [Suspect]
     Indication: DEPRESSION
     Dosage: 45 MG, ORAL
     Route: 048
     Dates: start: 20110831, end: 20111014

REACTIONS (1)
  - HEPATITIS [None]
